FAERS Safety Report 12654148 (Version 1)
Quarter: 2016Q3

REPORT INFORMATION
  Report Type: Spontaneous
  Country: US (occurrence: None)
  Receive Date: 20160815
  Receipt Date: 20160815
  Transmission Date: 20161109
  Serious: Yes (Life-Threatening, Other)
  Sender: FDA-Public Use
  Company Number: None

PATIENT
  Age: 62 Year
  Sex: Female

DRUGS (9)
  1. GABAPENTIN. [Concomitant]
     Active Substance: GABAPENTIN
  2. LEXAPRO [Concomitant]
     Active Substance: ESCITALOPRAM OXALATE
  3. PRAVASTATIN. [Concomitant]
     Active Substance: PRAVASTATIN
  4. VITAMIN D [Concomitant]
     Active Substance: CHOLECALCIFEROL
  5. RESPERIDONE [Concomitant]
     Active Substance: RISPERIDONE
  6. LISINOPRIL. [Concomitant]
     Active Substance: LISINOPRIL
  7. REBIF [Suspect]
     Active Substance: INTERFERON BETA-1A
     Indication: MULTIPLE SCLEROSIS
     Dosage: 1 INJECTION 3 DAYS PER WEEK GIVEN INTO/UNDER THE SKIN
     Route: 058
  8. ALBUTEROL. [Concomitant]
     Active Substance: ALBUTEROL
  9. KEPPRA [Concomitant]
     Active Substance: LEVETIRACETAM

REACTIONS (1)
  - Pyrexia [None]

NARRATIVE: CASE EVENT DATE: 20160720
